FAERS Safety Report 10058332 (Version 1)
Quarter: 2014Q2

REPORT INFORMATION
  Report Type: Spontaneous
  Country: US (occurrence: None)
  Receive Date: 20140402
  Receipt Date: 20140402
  Transmission Date: 20141212
  Serious: Yes (Hospitalization, Other)
  Sender: FDA-Public Use
  Company Number: US-ZYDUS-002872

PATIENT
  Age: 56 Year
  Sex: Female

DRUGS (4)
  1. CARVEDILOL [Suspect]
  2. ISOSORBIDE DINITRATE [Suspect]
  3. FENTANYL (FENTANYL) [Concomitant]
  4. MIDAZOLAM (MIDAZOLAM) [Concomitant]

REACTIONS (8)
  - Generalised tonic-clonic seizure [None]
  - Pulseless electrical activity [None]
  - Toxicity to various agents [None]
  - Respiratory acidosis [None]
  - Metabolic acidosis [None]
  - Hypoxia [None]
  - Hypercapnia [None]
  - Procedural complication [None]
